FAERS Safety Report 10858558 (Version 3)
Quarter: 2016Q2

REPORT INFORMATION
  Report Type: Spontaneous
  Country: DK (occurrence: DK)
  Receive Date: 20150223
  Receipt Date: 20160517
  Transmission Date: 20160815
  Serious: Yes (Hospitalization, Other)
  Sender: FDA-Public Use
  Company Number: DK-PFIZER INC-2015062736

PATIENT
  Age: 58 Year
  Sex: Female

DRUGS (8)
  1. LYRICA [Suspect]
     Active Substance: PREGABALIN
     Indication: ANXIETY
     Dosage: 50 MG, 2X/DAY
     Dates: start: 20131028
  2. SERTRALINE [Suspect]
     Active Substance: SERTRALINE HYDROCHLORIDE
     Dosage: UNK
  3. UNIKALK [Concomitant]
     Indication: VITAMIN D DEFICIENCY
     Dosage: 1 DF, 2X/DAY
  4. TRILEPTAL [Suspect]
     Active Substance: OXCARBAZEPINE
     Indication: PROPHYLAXIS
     Dosage: UNK
  5. PERATSIN [Concomitant]
     Active Substance: PERPHENAZINE
     Indication: MENTAL DISORDER
     Dosage: 4 MG, 1X/DAY
     Route: 048
  6. PROPRANOLOL [Concomitant]
     Active Substance: PROPRANOLOL\PROPRANOLOL HYDROCHLORIDE
     Indication: TREMOR
     Dosage: 2 DF, 3X/DAY
     Dates: start: 20130726
  7. KALEORID [Concomitant]
     Active Substance: POTASSIUM CHLORIDE
     Indication: PROPHYLAXIS
     Dosage: 1 DF, DAILY
     Route: 048
     Dates: start: 20130726
  8. FURIX [Concomitant]
     Active Substance: FUROSEMIDE

REACTIONS (15)
  - Paraesthesia [Unknown]
  - Hyponatraemia [Recovered/Resolved]
  - Contusion [Unknown]
  - Spinal compression fracture [Unknown]
  - Somnolence [Recovered/Resolved]
  - Dislocation of vertebra [Unknown]
  - Pneumonia [Unknown]
  - Dizziness [Not Recovered/Not Resolved]
  - Muscle spasms [Unknown]
  - Decubitus ulcer [Unknown]
  - Syncope [Recovered/Resolved]
  - Fall [Recovered/Resolved]
  - Speech disorder [Recovered/Resolved]
  - Balance disorder [Not Recovered/Not Resolved]
  - Myalgia [Recovering/Resolving]

NARRATIVE: CASE EVENT DATE: 201311
